FAERS Safety Report 23557056 (Version 2)
Quarter: 2024Q1

REPORT INFORMATION
  Report Type: Spontaneous
  Country: US (occurrence: US)
  Receive Date: 20240223
  Receipt Date: 20240229
  Transmission Date: 20240410
  Serious: No
  Sender: FDA-Public Use
  Company Number: US-LEO Pharma-367964

PATIENT
  Age: 44 Year
  Sex: Male

DRUGS (4)
  1. PROTOPIC [Suspect]
     Active Substance: TACROLIMUS
     Indication: Psoriasis
     Dosage: APPLY ONCE DAILY TO AFFECTED AREAS ON THE FACE).
     Route: 003
     Dates: start: 20231212
  2. CLOBETASOL [Suspect]
     Active Substance: CLOBETASOL
     Indication: Product used for unknown indication
     Dosage: 0.05%. APPLY TO AFFECTED SKIN IN YOUR SCALP TWICE A DAY
     Dates: start: 20231212
  3. ZORYVE [Suspect]
     Active Substance: ROFLUMILAST
     Indication: Product used for unknown indication
     Dosage: (APPLY TO AFFECTED AREA ONCE DAILY),
     Route: 003
     Dates: start: 20231212
  4. KETOCONAZOLE [Suspect]
     Active Substance: KETOCONAZOLE
     Indication: Product used for unknown indication
     Dosage: 2%. APPLY 3 TIMES A WEEK. LEAVE IT ON FOR 5 MIN AND THEN RINSE IT OFF)
     Dates: start: 20231212

REACTIONS (2)
  - Condition aggravated [Not Recovered/Not Resolved]
  - Product use in unapproved indication [Unknown]
